FAERS Safety Report 16403210 (Version 2)
Quarter: 2019Q2

REPORT INFORMATION
  Report Type: Spontaneous
  Country: US (occurrence: US)
  Receive Date: 20190607
  Receipt Date: 20190618
  Transmission Date: 20190711
  Serious: No
  Sender: FDA-Public Use
  Company Number: US-AMGEN-USASP2019085390

PATIENT
  Age: 68 Year
  Sex: Female
  Weight: 55.78 kg

DRUGS (2)
  1. PROLIA [Suspect]
     Active Substance: DENOSUMAB
     Indication: OSTEOPOROSIS
     Dosage: UNK UNK, Q6MO
     Route: 065
     Dates: start: 201811
  2. ASPERCREME [LIDOCAINE] [Concomitant]

REACTIONS (6)
  - Myalgia [Recovered/Resolved]
  - Bone pain [Unknown]
  - Arthralgia [Recovered/Resolved]
  - Headache [Unknown]
  - Sleep disorder due to a general medical condition [Unknown]
  - Back pain [Unknown]

NARRATIVE: CASE EVENT DATE: 20181110
